FAERS Safety Report 8901224 (Version 1)
Quarter: 2012Q4

REPORT INFORMATION
  Report Type: 
  Country: US (occurrence: US)
  Receive Date: 20121108
  Receipt Date: 20121108
  Transmission Date: 20130627
  Serious: No
  Sender: FDA-Public Use
  Company Number: US-ASTRAZENECA-2012SE82450

PATIENT
  Age: 73 Year
  Sex: Male

DRUGS (6)
  1. SYMBICORT PMDI [Suspect]
     Dosage: UNKNOWN
     Route: 055
  2. NEXIUM [Suspect]
     Route: 048
  3. TOPROL XL [Suspect]
     Route: 048
  4. METFORMIN [Concomitant]
  5. LANTUS INSULIN [Concomitant]
  6. JANUVIA [Concomitant]

REACTIONS (1)
  - Diabetes mellitus [Unknown]
